FAERS Safety Report 18935671 (Version 1)
Quarter: 2021Q1

REPORT INFORMATION
  Report Type: Spontaneous
  Country: BE (occurrence: BE)
  Receive Date: 20210224
  Receipt Date: 20210224
  Transmission Date: 20210420
  Serious: Yes (Hospitalization, Other)
  Sender: FDA-Public Use
  Company Number: BE-PFIZER INC-2021120348

PATIENT
  Age: 75 Year
  Sex: Female
  Weight: 80 kg

DRUGS (16)
  1. COMIRNATY [Suspect]
     Active Substance: TOZINAMERAN
     Indication: COVID-19 IMMUNISATION
     Dosage: SINGLE  DOSE
     Dates: start: 20210114, end: 20210114
  2. LYRICA [Suspect]
     Active Substance: PREGABALIN
     Dosage: 150 MG, 2X/DAY MORNING AND EVENING
  3. PANTOMED [DEXPANTHENOL] [Concomitant]
     Dosage: 40 MG, 1X/DAY MORNING
  4. HIRUDOID [Concomitant]
     Active Substance: GLYCOSAMINOGLYCANS
     Dosage: UNK, 2X/DAY (ON BRUISES)
  5. KEPPRA [Concomitant]
     Active Substance: LEVETIRACETAM
     Dosage: 750 MG, 2X/DAY
  6. TRAZODONE [Concomitant]
     Active Substance: TRAZODONE HYDROCHLORIDE
     Dosage: 100 MG, 1X/DAY BEDTIME
  7. LYRICA [Suspect]
     Active Substance: PREGABALIN
     Dosage: 75 MG, 2X/DAY
  8. RIOPAN [PIROXICAM] [Concomitant]
     Active Substance: PIROXICAM
     Dosage: 1DF DAILY, BEDTIME
  9. URICRAN [Concomitant]
     Dosage: 500 MG, 1X/DAY  MORNING
  10. ALPRAZOLAM. [Concomitant]
     Active Substance: ALPRAZOLAM
     Dosage: 0.125 MG, 1X/DAY EVENING
  11. LACTOSE [Concomitant]
     Active Substance: LACTOSE
     Dosage: 3DF DAILY (MORNING, NOON AND EVENING)
  12. ELIQUIS [Concomitant]
     Active Substance: APIXABAN
     Dosage: 5 MG, 2X/DAY
  13. OMNIBIONTA [AMINOBENZOIC ACID;MINERALS NOS;VITAMINS NOS] [Concomitant]
     Dosage: 1 DF, DAILY (MORNING)
  14. STEOVIT FORTE [Concomitant]
     Dosage: 1 DF, 1X/DAY (1 TABLET IN THE EVENING)
  15. CYMBALTA [Concomitant]
     Active Substance: DULOXETINE HYDROCHLORIDE
     Dosage: 60 MG, 1X/DAY MORNING
  16. PARACETAMOL [Concomitant]
     Active Substance: ACETAMINOPHEN
     Dosage: 500 MG, 3X/DAY (MORNING, NOON AND EVENING)

REACTIONS (4)
  - SARS-CoV-2 test positive [Recovering/Resolving]
  - Pneumonitis [Unknown]
  - Generalised tonic-clonic seizure [Recovering/Resolving]
  - Hypoglycaemia [Recovering/Resolving]

NARRATIVE: CASE EVENT DATE: 20210115
